FAERS Safety Report 7917184-0 (Version None)
Quarter: 2011Q4

REPORT INFORMATION
  Report Type: 
  Country: None (occurrence: None)
  Receive Date: 20111116
  Receipt Date: 20111115
  Transmission Date: 20120403
  Serious: Yes (Other)
  Sender: FDA-Public Use
  Company Number: IT-BAYER-2011-110566

PATIENT
  Age: 73 Year
  Sex: Male

DRUGS (1)
  1. ASPIRIN [Suspect]
     Dosage: 100 MG, QD
     Route: 048
     Dates: start: 20100815, end: 20110814

REACTIONS (1)
  - EYE HAEMORRHAGE [None]
